FAERS Safety Report 6147009-8 (Version None)
Quarter: 2009Q2

REPORT INFORMATION
  Report Type: 
  Country: None (occurrence: None)
  Receive Date: 20090403
  Receipt Date: 20090326
  Transmission Date: 20091009
  Serious: Yes (Other)
  Sender: FDA-Public Use
  Company Number: 2009SP006636

PATIENT
  Sex: Male

DRUGS (3)
  1. TEMODAL [Suspect]
     Indication: GLIOMA
  2. TAMEXIN [Concomitant]
  3. GLEEVEC [Concomitant]

REACTIONS (1)
  - HEARING IMPAIRED [None]
